FAERS Safety Report 8431202-5 (Version None)
Quarter: 2012Q2

REPORT INFORMATION
  Report Type: 
  Country: None (occurrence: None)
  Receive Date: 20120612
  Receipt Date: 20120608
  Transmission Date: 20120825
  Serious: Yes (Other)
  Sender: FDA-Public Use
  Company Number: PHHY2012TR043371

PATIENT
  Age: 51 Year
  Sex: Female

DRUGS (2)
  1. DULOXETIME HYDROCHLORIDE [Interacting]
     Indication: PANIC DISORDER
     Dosage: 60 MG, QD
  2. CIPROFLOXACIN [Suspect]
     Indication: URINARY TRACT INFECTION
     Dosage: 1500 MG, QD

REACTIONS (23)
  - HEADACHE [None]
  - CLONUS [None]
  - SEROTONIN SYNDROME [None]
  - DIZZINESS [None]
  - PALPITATIONS [None]
  - DIARRHOEA [None]
  - VISION BLURRED [None]
  - DRUG INTERACTION [None]
  - ANXIETY [None]
  - HYPERHIDROSIS [None]
  - TENSION [None]
  - HOT FLUSH [None]
  - CHILLS [None]
  - ERYTHEMA [None]
  - NAUSEA [None]
  - TREMOR [None]
  - MYDRIASIS [None]
  - SLOW RESPONSE TO STIMULI [None]
  - PUPILLARY REFLEX IMPAIRED [None]
  - DRY MOUTH [None]
  - GAIT DISTURBANCE [None]
  - IRRITABILITY [None]
  - RESTLESSNESS [None]
